FAERS Safety Report 6540339-7 (Version None)
Quarter: 2010Q1

REPORT INFORMATION
  Report Type: 
  Country: None (occurrence: None)
  Receive Date: 20100115
  Receipt Date: 20100113
  Transmission Date: 20100710
  Serious: Yes (Death, Hospitalization, Other)
  Sender: FDA-Public Use
  Company Number: PHHY2009BR51800

PATIENT
  Sex: Male

DRUGS (7)
  1. FORASEQ [Suspect]
     Indication: DYSPNOEA
     Dosage: 2 INHALATIONS WITH EACH ACTIVE SUBSTANCE
  2. FORASEQ [Suspect]
     Indication: EMPHYSEMA
  3. TRILEPTAL [Suspect]
     Indication: DEMENTIA
     Dosage: 2 TABLETS PER DAY
     Route: 048
     Dates: start: 20040101
  4. PROLOPA [Concomitant]
     Indication: PARKINSON'S DISEASE
     Dosage: 2 TABLETS PER DAY
     Route: 048
  5. ERANZ [Concomitant]
     Indication: DEMENTIA
     Dosage: 2 TABLETS PER DAY
     Route: 048
  6. MEMANTINE HCL [Concomitant]
     Indication: DEMENTIA
     Dosage: 2 TABLETS PER DAY
     Route: 048
  7. ALPRAZOLAM [Concomitant]
     Indication: DEMENTIA
     Dosage: 1 TABLET PER DAY
     Route: 048

REACTIONS (3)
  - PNEUMONIA BACTERIAL [None]
  - PULMONARY SEPSIS [None]
  - SEPTIC SHOCK [None]
